FAERS Safety Report 23963137 (Version 1)
Quarter: 2024Q2

REPORT INFORMATION
  Report Type: Spontaneous
  Country: US (occurrence: US)
  Receive Date: 20240611
  Receipt Date: 20240611
  Transmission Date: 20240716
  Serious: No
  Sender: FDA-Public Use
  Company Number: US-MMM-YG83X7CK

PATIENT
  Age: 76 Year
  Sex: Female
  Weight: 63 kg

DRUGS (2)
  1. CEFTRIAXONE [Suspect]
     Active Substance: CEFTRIAXONE\CEFTRIAXONE SODIUM
     Indication: Arthritis infective
     Dosage: 2 G, Q24H (2GM SINGLE DOSE VIAL; 2GM EVERY 24 HOURS INTRAVENOUSLY)
     Route: 042
  2. CEFTRIAXONE [Suspect]
     Active Substance: CEFTRIAXONE\CEFTRIAXONE SODIUM
     Indication: Lyme disease

REACTIONS (4)
  - Pharyngeal swelling [Recovered/Resolved]
  - Throat irritation [Recovered/Resolved]
  - Cough [Recovered/Resolved]
  - Pruritus [Recovered/Resolved]

NARRATIVE: CASE EVENT DATE: 20240601
